FAERS Safety Report 4364694-1 (Version None)
Quarter: 2004Q2

REPORT INFORMATION
  Report Type: 
  Country: None (occurrence: None)
  Receive Date: 20040521
  Receipt Date: 20040504
  Transmission Date: 20050107
  Serious: Yes (Hospitalization)
  Sender: FDA-Public Use
  Company Number: EWC040539135

PATIENT
  Age: 47 Year
  Sex: Male

DRUGS (1)
  1. CIALIS [Suspect]
     Indication: ERECTILE DYSFUNCTION
     Dosage: 10 MG AS NEEDED
     Dates: start: 20040104

REACTIONS (8)
  - BACK PAIN [None]
  - CEREBRAL INFARCTION [None]
  - COMA [None]
  - CONVULSION [None]
  - EYELID OEDEMA [None]
  - HEADACHE [None]
  - PAIN IN EXTREMITY [None]
  - PROTHROMBIN TIME PROLONGED [None]
